FAERS Safety Report 18831580 (Version 3)
Quarter: 2021Q4

REPORT INFORMATION
  Report Type: Spontaneous
  Country: GB (occurrence: GB)
  Receive Date: 20210203
  Receipt Date: 20211123
  Transmission Date: 20220303
  Serious: Yes (Life-Threatening, Hospitalization, Other)
  Sender: FDA-Public Use
  Company Number: GB-002147023-NVSC2020GB268345

PATIENT
  Age: 23 Year
  Sex: Female
  Weight: 58 kg

DRUGS (12)
  1. FLUCLOXACILLIN [Suspect]
     Active Substance: FLUCLOXACILLIN
     Indication: Postoperative wound infection
     Dosage: 500 MG (14 DAYS)
     Route: 048
     Dates: start: 20171208, end: 20171215
  2. FLUCLOXACILLIN [Suspect]
     Active Substance: FLUCLOXACILLIN
     Indication: Postoperative wound infection
  3. IMATINIB [Suspect]
     Active Substance: IMATINIB
     Indication: Thrombocytosis
     Dosage: 400 MILLIGRAM, ONCE A DAY
     Route: 048
     Dates: start: 20170918, end: 20171224
  4. IMATINIB [Suspect]
     Active Substance: IMATINIB
     Indication: Thrombocytosis
  5. IMATINIB [Suspect]
     Active Substance: IMATINIB
     Indication: Chronic myeloid leukaemia
  6. IMATINIB [Suspect]
     Active Substance: IMATINIB
     Indication: Chronic myeloid leukaemia
  7. IMATINIB [Suspect]
     Active Substance: IMATINIB
     Indication: Thrombocytosis
  8. METRONIDAZOLE [Suspect]
     Active Substance: METRONIDAZOLE
     Indication: Postoperative wound infection
     Dosage: 400 MG (14 DAYS)
     Route: 065
     Dates: start: 20171208, end: 20171215
  9. METRONIDAZOLE [Suspect]
     Active Substance: METRONIDAZOLE
     Indication: Postoperative wound infection
  10. DASATINIB [Suspect]
     Active Substance: DASATINIB
     Indication: Product used for unknown indication
     Dosage: 50 MILLIGRAM, ONCE A DAY
     Route: 065
  11. FERROUS SULFATE [Suspect]
     Active Substance: FERROUS SULFATE
     Indication: Iron deficiency anaemia
     Dosage: UNK
     Route: 065
     Dates: start: 20170823
  12. TACROLIMUS [Concomitant]
     Active Substance: TACROLIMUS
     Indication: Immunosuppression
     Dosage: UNK
     Route: 065

REACTIONS (10)
  - Nausea [Not Recovered/Not Resolved]
  - Vomiting [Not Recovered/Not Resolved]
  - Polyhydramnios [Unknown]
  - Post procedural infection [Unknown]
  - Jaundice [Unknown]
  - Liver disorder [Unknown]
  - Normal newborn [Unknown]
  - Weight increased [Unknown]
  - Maternal exposure during pregnancy [Unknown]
  - Hepatic failure [Recovered/Resolved with Sequelae]

NARRATIVE: CASE EVENT DATE: 20171228
